FAERS Safety Report 18563982 (Version 1)
Quarter: 2020Q4

REPORT INFORMATION
  Report Type: Spontaneous
  Country: US (occurrence: US)
  Receive Date: 20201130
  Receipt Date: 20201130
  Transmission Date: 20210114
  Serious: Yes (Death, Life-Threatening, Hospitalization, Disabling)
  Sender: FDA-Public Use
  Company Number: None

PATIENT
  Age: 80 Year
  Sex: Male
  Weight: 71.55 kg

DRUGS (30)
  1. JANUVIA [Concomitant]
     Active Substance: SITAGLIPTIN PHOSPHATE
  2. FERROUS SULFATE. [Concomitant]
     Active Substance: FERROUS SULFATE
  3. LEVOTHYROXINE. [Concomitant]
     Active Substance: LEVOTHYROXINE
  4. BERBERINE [Concomitant]
     Active Substance: BERBERINE
  5. DIPHENHYDRAMINE. [Concomitant]
     Active Substance: DIPHENHYDRAMINE
  6. JARDIANCE [Concomitant]
     Active Substance: EMPAGLIFLOZIN
  7. QUINAPRIL. [Concomitant]
     Active Substance: QUINAPRIL
  8. ALPHA LIPOIC ACID [Concomitant]
     Active Substance: .ALPHA.-LIPOIC ACID
  9. METOPROLOL. [Concomitant]
     Active Substance: METOPROLOL
  10. L-THEANINE [Concomitant]
     Active Substance: DIETARY SUPPLEMENT
  11. ASPIRIN. [Concomitant]
     Active Substance: ASPIRIN
  12. GLUCONUTRITIONAL SUPPLEMENT [Concomitant]
  13. CRESTOR [Concomitant]
     Active Substance: ROSUVASTATIN CALCIUM
  14. ZETIA [Concomitant]
     Active Substance: EZETIMIBE
  15. PREGENOLONE [Concomitant]
  16. AMBROTOSE [Concomitant]
     Active Substance: ALOE VERA LEAF\GLUCOSAMINE HYDROCHLORIDE\LARIX DECIDUA WOOD\TRAGACANTH
  17. METAGENICS VITAMIN [Concomitant]
  18. SCHIFF MOVE FREE [Concomitant]
     Active Substance: DIETARY SUPPLEMENT
  19. CAPECITABINE ORAL TAB 500 MG (ACC) [Suspect]
     Active Substance: CAPECITABINE
     Indication: NEOPLASM MALIGNANT
     Dosage: ?          QUANTITY:4 TABLET(S);?
     Route: 048
     Dates: start: 20201105, end: 20201113
  20. CAPECITABINE ORAL TABLETS [Concomitant]
     Active Substance: CAPECITABINE
     Indication: NEOPLASM MALIGNANT
     Route: 048
     Dates: start: 20201105, end: 20201113
  21. NEXIUM [Concomitant]
     Active Substance: ESOMEPRAZOLE MAGNESIUM
  22. GABAPENTIN. [Concomitant]
     Active Substance: GABAPENTIN
  23. METOPROLOL. [Concomitant]
     Active Substance: METOPROLOL
  24. METFORMIN [Concomitant]
     Active Substance: METFORMIN HYDROCHLORIDE
  25. TESTOSERONE 50MG [Concomitant]
     Active Substance: TESTOSTERONE
  26. ANASTROZOLE AVICEL [Concomitant]
  27. MELATONIN [Concomitant]
     Active Substance: MELATONIN
  28. CELEBREX [Concomitant]
     Active Substance: CELECOXIB
  29. DHEA [Concomitant]
     Active Substance: PRASTERONE
  30. TRIMETHYGLYCINE [Concomitant]

REACTIONS (9)
  - General physical health deterioration [None]
  - Hypophagia [None]
  - Drug ineffective [None]
  - Cardiac disorder [None]
  - Colon cancer metastatic [None]
  - Weight decreased [None]
  - Renal disorder [None]
  - Diabetes mellitus [None]
  - Stomatitis [None]

NARRATIVE: CASE EVENT DATE: 20201113
